FAERS Safety Report 7122541-9 (Version None)
Quarter: 2010Q4

REPORT INFORMATION
  Report Type: 
  Country: None (occurrence: None)
  Receive Date: 20101124
  Receipt Date: 20101111
  Transmission Date: 20110411
  Serious: Yes (Other)
  Sender: FDA-Public Use
  Company Number: DK-WATSON-2010-14950

PATIENT
  Sex: Female
  Weight: 70 kg

DRUGS (1)
  1. SIMVASTATIN [Suspect]
     Indication: HYPERCHOLESTEROLAEMIA
     Dosage: 40 MG, UNKNOWN
     Route: 048
     Dates: start: 20080422, end: 20081222

REACTIONS (4)
  - COUGH [None]
  - DYSPNOEA [None]
  - FATIGUE [None]
  - PULMONARY FIBROSIS [None]
